FAERS Safety Report 5784925-0 (Version None)
Quarter: 2008Q2

REPORT INFORMATION
  Report Type: 
  Country: None (occurrence: None)
  Receive Date: 20080605
  Receipt Date: 20080509
  Transmission Date: 20081010
  Serious: No
  Sender: FDA-Public Use
  Company Number: A0723145A

PATIENT
  Weight: 100 kg

DRUGS (2)
  1. ALLI [Suspect]
     Dates: start: 20080327
  2. VITAMIN [Concomitant]

REACTIONS (7)
  - ADVERSE EVENT [None]
  - DECREASED APPETITE [None]
  - DRUG INEFFECTIVE [None]
  - MENSTRUATION IRREGULAR [None]
  - MUSCLE SPASMS [None]
  - PAIN [None]
  - PAIN IN EXTREMITY [None]
